FAERS Safety Report 17370027 (Version 1)
Quarter: 2020Q1

REPORT INFORMATION
  Report Type: Spontaneous
  Country: US (occurrence: US)
  Receive Date: 20200121
  Receipt Date: 20200121
  Transmission Date: 20200409
  Serious: Yes (Death)
  Sender: FDA-Public Use
  Company Number: None

PATIENT
  Sex: Female

DRUGS (3)
  1. TYKERB [Suspect]
     Active Substance: LAPATINIB DITOSYLATE
     Dosage: ?          OTHER DOSE:3 TABS BID;?
     Route: 048
  2. TYKERB [Suspect]
     Active Substance: LAPATINIB DITOSYLATE
     Indication: BREAST CANCER FEMALE
     Dosage: ?          OTHER DOSE:5 TABS;?
     Route: 048
     Dates: start: 20190608
  3. CAPECITABINE 500MG TAB [Suspect]
     Active Substance: CAPECITABINE

REACTIONS (1)
  - Death [None]
